FAERS Safety Report 7551132-0 (Version None)
Quarter: 2011Q2

REPORT INFORMATION
  Report Type: 
  Country: None (occurrence: None)
  Receive Date: 20110616
  Receipt Date: 20110609
  Transmission Date: 20111010
  Serious: Yes (Other)
  Sender: FDA-Public Use
  Company Number: BR-SANOFI-AVENTIS-2011SA036787

PATIENT
  Age: 40 Year
  Sex: Female
  Weight: 46 kg

DRUGS (4)
  1. ALLEGRA D 24 HOUR [Suspect]
     Route: 048
     Dates: start: 20110604, end: 20110608
  2. CLENIL [Concomitant]
     Indication: SECRETION DISCHARGE
     Dosage: 2 SPRAYS IN EACH NOSTRIL
     Route: 045
     Dates: start: 20110604
  3. PHENOBARBITAL TAB [Concomitant]
     Route: 048
     Dates: start: 19900101
  4. SODIUM CHLORIDE [Concomitant]
     Indication: SECRETION DISCHARGE
     Route: 045
     Dates: start: 20110604, end: 20110605

REACTIONS (10)
  - MYOCARDIAL INFARCTION [None]
  - ANXIETY [None]
  - CHEST DISCOMFORT [None]
  - PAIN [None]
  - POOR QUALITY SLEEP [None]
  - SLEEP DISORDER [None]
  - FEELING HOT [None]
  - ASTHENIA [None]
  - DISCOMFORT [None]
  - SOMNOLENCE [None]
